FAERS Safety Report 5075984-1 (Version None)
Quarter: 2006Q3

REPORT INFORMATION
  Report Type: 
  Country: None (occurrence: None)
  Receive Date: 20060808
  Receipt Date: 20060808
  Transmission Date: 20061208
  Serious: Yes (Life-Threatening, Hospitalization, Other)
  Sender: FDA-Public Use
  Company Number: None

PATIENT
  Age: 87 Year
  Sex: Female
  Weight: 55.3388 kg

DRUGS (1)
  1. PAXIL [Suspect]
     Indication: ANXIETY
     Dates: start: 20060502, end: 20060715

REACTIONS (6)
  - CEREBRAL DISORDER [None]
  - DIZZINESS [None]
  - FALL [None]
  - HEAD INJURY [None]
  - MALAISE [None]
  - SYNCOPE [None]
